FAERS Safety Report 5210013-8 (Version None)
Quarter: 2006Q4

REPORT INFORMATION
  Report Type: 
  Country: None (occurrence: None)
  Receive Date: 20061130
  Receipt Date: 20060714
  Transmission Date: 20070319
  Serious: Yes (Other)
  Sender: FDA-Public Use
  Company Number: 2005US001590

PATIENT
  Age: 58 Year
  Sex: Female
  Weight: 49 kg

DRUGS (4)
  1. PROTOPIC [Suspect]
     Indication: ECZEMA
     Dosage: BID, TOPICAL
     Route: 061
     Dates: start: 20030401, end: 20050301
  2. ELIDEL [Suspect]
     Indication: ECZEMA
     Dosage: BID, TOPICAL
     Route: 061
     Dates: start: 20030401, end: 20050301
  3. BETASERON (GLUCOSE, INTERFERON BETA, ALBUMIN HUMAN) [Concomitant]
  4. COPAXONE [Concomitant]

REACTIONS (1)
  - B-CELL LYMPHOMA [None]
